FAERS Safety Report 9214580 (Version 1)
Quarter: 2013Q2

REPORT INFORMATION
  Report Type: Spontaneous
  Country: IN (occurrence: None)
  Receive Date: 20130403
  Receipt Date: 20130403
  Transmission Date: 20140414
  Serious: Yes (Death, Hospitalization)
  Sender: FDA-Public Use
  Company Number: B0879917A

PATIENT
  Sex: Male

DRUGS (2)
  1. CARVEDILOL (CARVEDILOL) [Suspect]
     Indication: CONGESTIVE CARDIOMYOPATHY
     Route: 048
  2. NORMAL IMMUNOGLOBULIN [Concomitant]

REACTIONS (2)
  - Cardiac failure [None]
  - Respiratory tract infection [None]
